FAERS Safety Report 18376369 (Version 2)
Quarter: 2020Q4

REPORT INFORMATION
  Report Type: Report from Study
  Country: US (occurrence: US)
  Receive Date: 20201013
  Receipt Date: 20201028
  Transmission Date: 20210114
  Serious: Yes (Death)
  Sender: FDA-Public Use
  Company Number: US-PFIZER INC-2020391482

PATIENT

DRUGS (5)
  1. CISPLATIN. [Suspect]
     Active Substance: CISPLATIN
     Indication: TRANSITIONAL CELL CARCINOMA
     Dosage: 70 MG/M2, CYCLIC (ON DAY 2)
  2. VINBLASTINE [Suspect]
     Active Substance: VINBLASTINE
     Indication: TRANSITIONAL CELL CARCINOMA
     Dosage: 3 MG/M2, CYCLIC (ON DAY 2, 15, 20)
  3. ADRIAMYCIN [Suspect]
     Active Substance: DOXORUBICIN HYDROCHLORIDE
     Indication: TRANSITIONAL CELL CARCINOMA
     Dosage: 30 MG/M2 OR 15 MG/M2, CYCLIC (ON DAY 2)
  4. MANNITOL. [Concomitant]
     Active Substance: MANNITOL
     Dosage: 12.5 G
  5. METHOTREXATE SODIUM. [Suspect]
     Active Substance: METHOTREXATE SODIUM
     Indication: TRANSITIONAL CELL CARCINOMA
     Dosage: 30 MG/M2, CYCLIC (ON DAYS 1, 15 AND 22)

REACTIONS (1)
  - Myelosuppression [Fatal]
